FAERS Safety Report 14692138 (Version 1)
Quarter: 2018Q1

REPORT INFORMATION
  Report Type: Report from Study
  Country: None (occurrence: NL)
  Receive Date: 20180329
  Receipt Date: 20180329
  Transmission Date: 20180509
  Serious: Yes (Hospitalization)
  Sender: FDA-Public Use
  Company Number: NL-ABBVIE-18K-114-2301440-00

PATIENT
  Age: 82 Year
  Sex: Male

DRUGS (1)
  1. DUODOPA [Suspect]
     Active Substance: CARBIDOPA\LEVODOPA
     Indication: PARKINSON^S DISEASE
     Dosage: MD: 10, CD: 1.6, ED: 1.0
     Route: 050
     Dates: start: 20180307

REACTIONS (7)
  - Dyskinesia [Not Recovered/Not Resolved]
  - Stoma site pain [Recovering/Resolving]
  - Stoma site induration [Not Recovered/Not Resolved]
  - Lung disorder [Unknown]
  - Renal disorder [Unknown]
  - Adverse reaction [Not Recovered/Not Resolved]
  - Dyspnoea [Not Recovered/Not Resolved]

NARRATIVE: CASE EVENT DATE: 201803
